FAERS Safety Report 9656596 (Version 1)
Quarter: 2013Q4

REPORT INFORMATION
  Report Type: Spontaneous
  Country: US (occurrence: US)
  Receive Date: 20131030
  Receipt Date: 20131030
  Transmission Date: 20140711
  Serious: No
  Sender: FDA-Public Use
  Company Number: US-GLAXOSMITHKLINE-A1027199A

PATIENT
  Age: 79 Year
  Sex: Female
  Weight: 97.7 kg

DRUGS (10)
  1. SEREVENT [Suspect]
     Indication: PRODUCT USED FOR UNKNOWN INDICATION
     Dosage: 50MCG UNKNOWN
  2. SOTALOL [Concomitant]
  3. SPIRONOLACTONE [Concomitant]
  4. DIGOXIN [Concomitant]
  5. TORSEMIDE [Concomitant]
  6. LOSARTAN [Concomitant]
  7. TRIMETHOPRIM [Concomitant]
  8. VESICARE [Concomitant]
  9. SPIRIVA [Concomitant]
  10. VENTOLIN HFA [Concomitant]

REACTIONS (1)
  - Surgery [Unknown]
